FAERS Safety Report 9467607 (Version 1)
Quarter: 2013Q3

REPORT INFORMATION
  Report Type: Spontaneous
  Country: US (occurrence: None)
  Receive Date: 20130819
  Receipt Date: 20130819
  Transmission Date: 20140515
  Serious: Yes (Disabling)
  Sender: FDA-Public Use
  Company Number: None

PATIENT
  Age: 57 Year
  Sex: Female
  Weight: 76.2 kg

DRUGS (1)
  1. LEVOFLOXACIN [Suspect]
     Dosage: TAKEN BY MOUTH
     Route: 048
     Dates: start: 20101107

REACTIONS (1)
  - Neuropathy peripheral [None]
